FAERS Safety Report 6165206-2 (Version None)
Quarter: 2009Q2

REPORT INFORMATION
  Report Type: 
  Country: None (occurrence: None)
  Receive Date: 20090423
  Receipt Date: 20090422
  Transmission Date: 20091009
  Serious: Yes (Hospitalization)
  Sender: FDA-Public Use
  Company Number: US-PFIZER INC-2009181711

PATIENT

DRUGS (8)
  1. HEPARIN SODIUM [Suspect]
     Dosage: UNK
     Dates: start: 20081101
  2. LORTAB [Concomitant]
  3. SOMA [Concomitant]
  4. ATIVAN [Concomitant]
  5. PLAVIX [Concomitant]
  6. ATENOLOL [Concomitant]
  7. ASPIRIN [Concomitant]
  8. WARFARIN SODIUM [Concomitant]

REACTIONS (1)
  - UNEVALUABLE EVENT [None]
